FAERS Safety Report 9440756 (Version 2)
Quarter: 2013Q3

REPORT INFORMATION
  Report Type: Spontaneous
  Country: US (occurrence: US)
  Receive Date: 20130805
  Receipt Date: 20130828
  Transmission Date: 20140515
  Serious: No
  Sender: FDA-Public Use
  Company Number: US-009507513-1308USA001986

PATIENT
  Sex: Male

DRUGS (1)
  1. COPPERTONE SPORT DRY LOTION SPF 50 [Suspect]
     Indication: PRODUCT USED FOR UNKNOWN INDICATION
     Dosage: UNK, UNKNOWN
     Route: 061
     Dates: start: 20130723

REACTIONS (2)
  - Eye irritation [Unknown]
  - Lacrimation increased [Unknown]
